FAERS Safety Report 5277750-0 (Version None)
Quarter: 2007Q1

REPORT INFORMATION
  Report Type: 
  Country: None (occurrence: None)
  Receive Date: 20070320
  Receipt Date: 20070307
  Transmission Date: 20070707
  Serious: Yes (Hospitalization, Disabling)
  Sender: FDA-Public Use
  Company Number: WAES 0611USA04018

PATIENT
  Age: 38 Year
  Sex: Male
  Weight: 54.8852 kg

DRUGS (2)
  1. TAB SITAGLIPTIN PHOSPHATE 100 MG [Suspect]
     Indication: DIABETES MELLITUS NON-INSULIN-DEPENDENT
     Dosage: 100 MG/DAILY/PO
     Route: 048
     Dates: start: 20060928, end: 20061031
  2. [THERAPY UNSPECIFIED] [Concomitant]

REACTIONS (6)
  - BLOOD POTASSIUM DECREASED [None]
  - CAROTID ARTERY OCCLUSION [None]
  - CEREBRAL INFARCTION [None]
  - HEMIPLEGIA [None]
  - PNEUMONITIS [None]
  - SINUS TACHYCARDIA [None]
